FAERS Safety Report 23474446 (Version 1)
Quarter: 2024Q1

REPORT INFORMATION
  Report Type: Report from Study
  Country: US (occurrence: US)
  Receive Date: 20240204
  Receipt Date: 20240204
  Transmission Date: 20240410
  Serious: Yes (Death)
  Sender: FDA-Public Use
  Company Number: US-EXELIXIS-CABO-23061130

PATIENT
  Age: 67 Year
  Sex: Female

DRUGS (20)
  1. CABOMETYX [Suspect]
     Active Substance: CABOZANTINIB S-MALATE
     Indication: Renal cell carcinoma
     Dosage: 40 MG, QD
     Route: 048
     Dates: start: 20220810
  2. CABOMETYX [Suspect]
     Active Substance: CABOZANTINIB S-MALATE
     Dosage: 20 MG, QD
     Route: 048
     Dates: start: 20221025, end: 20221228
  3. LENVIMA [Suspect]
     Active Substance: LENVATINIB
     Indication: Renal cell carcinoma
     Dosage: UNK
  4. OPDIVO [Concomitant]
     Active Substance: NIVOLUMAB
  5. KEYTRUDA [Concomitant]
     Active Substance: PEMBROLIZUMAB
  6. FENTANYL [Concomitant]
     Active Substance: FENTANYL\FENTANYL CITRATE
  7. LIDOCAINE [Concomitant]
     Active Substance: LIDOCAINE
  8. LOMOTIL [Concomitant]
     Active Substance: ATROPINE SULFATE\DIPHENOXYLATE HYDROCHLORIDE
  9. ONDANSETRON [Concomitant]
     Active Substance: ONDANSETRON
  10. PROCHLORPERAZINE [Concomitant]
     Active Substance: PROCHLORPERAZINE
  11. XGEVA [Concomitant]
     Active Substance: DENOSUMAB
  12. FAMOTIDINE [Concomitant]
     Active Substance: FAMOTIDINE
  13. GABAPENTIN [Concomitant]
     Active Substance: GABAPENTIN
  14. OMEPRAZOLE [Concomitant]
     Active Substance: OMEPRAZOLE
  15. OXYCONTIN [Concomitant]
     Active Substance: OXYCODONE HYDROCHLORIDE
  16. PERCOCET [Concomitant]
     Active Substance: ACETAMINOPHEN\OXYCODONE HYDROCHLORIDE
  17. RELISTOR [Concomitant]
     Active Substance: METHYLNALTREXONE BROMIDE
  18. SYNTHROID [Concomitant]
     Active Substance: LEVOTHYROXINE SODIUM
  19. PROTONIX [Concomitant]
     Active Substance: PANTOPRAZOLE SODIUM
  20. TYLENOL [Concomitant]
     Active Substance: ACETAMINOPHEN

REACTIONS (1)
  - Malignant neoplasm progression [Fatal]

NARRATIVE: CASE EVENT DATE: 20230219
